FAERS Safety Report 6062993-9 (Version None)
Quarter: 2009Q1

REPORT INFORMATION
  Report Type: 
  Country: None (occurrence: None)
  Receive Date: 20090203
  Receipt Date: 20090129
  Transmission Date: 20090719
  Serious: Yes (Hospitalization)
  Sender: FDA-Public Use
  Company Number: B0556512A

PATIENT
  Age: 86 Year
  Sex: Female

DRUGS (16)
  1. VALTREX [Suspect]
     Indication: HERPES ZOSTER
     Dosage: 1000MG THREE TIMES PER DAY
     Route: 048
     Dates: start: 20090123, end: 20090126
  2. MAGNESIUM OXIDE [Concomitant]
     Route: 048
  3. BIOFERMIN [Concomitant]
     Route: 048
  4. PERSANTINE [Concomitant]
     Route: 065
  5. GLAKAY [Concomitant]
     Route: 048
  6. FLUITRAN [Concomitant]
     Route: 048
  7. AMLODIPINE [Concomitant]
     Route: 048
  8. ALDACTONE [Concomitant]
     Route: 048
  9. LOXONIN [Concomitant]
     Route: 065
  10. SELBEX [Concomitant]
     Route: 048
  11. ALFAROL [Concomitant]
     Route: 048
  12. RINDERON [Concomitant]
     Route: 061
  13. ARASENA-A [Concomitant]
     Route: 065
  14. MENTAX [Concomitant]
     Route: 065
  15. NEUROTROPIN [Concomitant]
  16. ELCITONIN [Concomitant]
     Route: 030

REACTIONS (5)
  - ANOREXIA [None]
  - BLOOD CREATININE INCREASED [None]
  - BLOOD UREA INCREASED [None]
  - CARDIAC FAILURE ACUTE [None]
  - DEPRESSED LEVEL OF CONSCIOUSNESS [None]
